FAERS Safety Report 6470213-6 (Version None)
Quarter: 2009Q4

REPORT INFORMATION
  Report Type: 
  Country: None (occurrence: None)
  Receive Date: 20091203
  Receipt Date: 20071210
  Transmission Date: 20100525
  Serious: Yes (Other)
  Sender: FDA-Public Use
  Company Number: US-ELI_LILLY_AND_COMPANY-US200712002096

PATIENT
  Sex: Female
  Weight: 111.11 kg

DRUGS (9)
  1. BYETTA [Suspect]
     Indication: TYPE 2 DIABETES MELLITUS
     Dosage: 5 UG, 2/D
     Route: 058
     Dates: start: 20071010, end: 20071108
  2. BYETTA [Suspect]
     Dosage: 10 UG, 2/D
     Route: 058
     Dates: start: 20071109, end: 20071210
  3. METFORMIN HCL [Concomitant]
     Dates: end: 20071010
  4. GLYBURIDE [Concomitant]
     Dates: start: 20071001, end: 20071101
  5. VYTORIN [Concomitant]
     Indication: ISCHAEMIC HEART DISEASE PROPHYLAXIS
     Dosage: 40 MG, DAILY (1/D)
     Route: 048
     Dates: start: 19950101
  6. NEXIUM [Concomitant]
     Indication: GASTROOESOPHAGEAL REFLUX DISEASE
     Dosage: 40 MG, DAILY (1/D)
     Route: 048
  7. COZAAR [Concomitant]
     Indication: BLOOD CHOLESTEROL
     Dosage: 100 MG, DAILY (1/D)
     Route: 048
  8. TOPROL-XL [Concomitant]
     Indication: HEART RATE INCREASED
  9. GABAPENTIN [Concomitant]
     Indication: NERVE INJURY
     Dosage: 100 MG, DAILY (1/D)
     Route: 048

REACTIONS (8)
  - ABDOMINAL PAIN UPPER [None]
  - BLOOD GLUCOSE DECREASED [None]
  - BLOOD PRESSURE INCREASED [None]
  - HEART RATE INCREASED [None]
  - NAUSEA [None]
  - PANCREATITIS [None]
  - TREMOR [None]
  - WEIGHT DECREASED [None]
